FAERS Safety Report 8776647 (Version 1)
Quarter: 2012Q4

REPORT INFORMATION
  Report Type: Report from Study
  Country: CO (occurrence: CO)
  Receive Date: 20120911
  Receipt Date: 20120911
  Transmission Date: 20130627
  Serious: Yes (Hospitalization)
  Sender: FDA-Public Use
  Company Number: CO-ROCHE-1112242

PATIENT
  Age: 41 Year
  Sex: Female

DRUGS (1)
  1. ROACTEMRA [Suspect]
     Indication: RHEUMATOID ARTHRITIS
     Route: 042
     Dates: start: 20120228

REACTIONS (3)
  - Depression [Recovered/Resolved]
  - Sinusitis [Recovered/Resolved]
  - Conjunctivitis [Recovered/Resolved]
